FAERS Safety Report 10221820 (Version 1)
Quarter: 2014Q2

REPORT INFORMATION
  Report Type: Spontaneous
  Country: US (occurrence: None)
  Receive Date: 20140606
  Receipt Date: 20140606
  Transmission Date: 20141212
  Serious: Yes (Disabling, Other)
  Sender: FDA-Public Use
  Company Number: None

PATIENT
  Age: 55 Year
  Sex: Female
  Weight: 154.22 kg

DRUGS (3)
  1. DULOXETINE [Suspect]
     Indication: DEPRESSION
     Route: 048
     Dates: start: 20140415, end: 20140525
  2. DULOXETINE [Suspect]
     Indication: FIBROMYALGIA
     Route: 048
     Dates: start: 20140415, end: 20140525
  3. DULOXETINE [Suspect]
     Indication: RHEUMATOID ARTHRITIS
     Route: 048
     Dates: start: 20140415, end: 20140525

REACTIONS (14)
  - Mood altered [None]
  - Decreased appetite [None]
  - Anxiety [None]
  - Myalgia [None]
  - Muscular weakness [None]
  - Dysstasia [None]
  - Back pain [None]
  - Thinking abnormal [None]
  - Malaise [None]
  - Dehydration [None]
  - Blood sodium decreased [None]
  - Drug withdrawal syndrome [None]
  - Suicidal ideation [None]
  - Product substitution issue [None]
